FAERS Safety Report 8774618 (Version 2)
Quarter: 2012Q4

REPORT INFORMATION
  Report Type: Report from Study
  Country: ES (occurrence: ES)
  Receive Date: 20120907
  Receipt Date: 20120912
  Transmission Date: 20130627
  Serious: Yes (Hospitalization)
  Sender: FDA-Public Use
  Company Number: ES-BRISTOL-MYERS SQUIBB COMPANY-16914251

PATIENT
  Age: 43 Year
  Sex: Male

DRUGS (2)
  1. IPILIMUMAB [Suspect]
     Indication: METASTATIC MALIGNANT MELANOMA
     Dosage: stop date:03Sep2012
     Route: 042
     Dates: start: 20120713
  2. PANTOPRAZOLE [Concomitant]
     Dates: start: 20120710

REACTIONS (2)
  - Hypokalaemia [Recovered/Resolved]
  - Back pain [Unknown]
